FAERS Safety Report 5670456-5 (Version None)
Quarter: 2008Q1

REPORT INFORMATION
  Report Type: 
  Country: None (occurrence: None)
  Receive Date: 20080318
  Receipt Date: 20080311
  Transmission Date: 20080703
  Serious: Yes (Life-Threatening)
  Sender: FDA-Public Use
  Company Number: DE-ABBOTT-08P-062-0433571-00

PATIENT
  Sex: Female
  Weight: 103 kg

DRUGS (6)
  1. HUMIRA [Suspect]
     Indication: PSORIATIC ARTHROPATHY
     Route: 058
     Dates: start: 20071207, end: 20071220
  2. ISOZID COMP [Concomitant]
     Indication: ANTIBIOTIC PROPHYLAXIS
     Dosage: XXMG ISONIAZID/XXMG PYRIDOXIN
     Route: 048
     Dates: start: 20071106
  3. RIFAMPICIN [Concomitant]
     Indication: ANTIBIOTIC PROPHYLAXIS
     Route: 048
     Dates: start: 20071106
  4. CO-APROVEL [Concomitant]
     Indication: DRUG USE FOR UNKNOWN INDICATION
     Route: 048
  5. NITRENDIPINE [Concomitant]
     Indication: DRUG USE FOR UNKNOWN INDICATION
     Route: 048
  6. BISOPROLOL FUMARATE [Concomitant]
     Indication: DRUG USE FOR UNKNOWN INDICATION
     Route: 048
     Dates: end: 20071201

REACTIONS (3)
  - ANGINA PECTORIS [None]
  - DYSPNOEA [None]
  - HYPERTENSIVE CRISIS [None]
